FAERS Safety Report 15313680 (Version 1)
Quarter: 2018Q3

REPORT INFORMATION
  Report Type: Spontaneous
  Country: US (occurrence: US)
  Receive Date: 20180824
  Receipt Date: 20180824
  Transmission Date: 20181010
  Serious: No
  Sender: FDA-Public Use
  Company Number: US-009507513-1808USA006631

PATIENT
  Age: 29 Year
  Sex: Female
  Weight: 107.94 kg

DRUGS (1)
  1. NEXPLANON [Suspect]
     Active Substance: ETONOGESTREL
     Dosage: 1 IMPLANT
     Route: 059
     Dates: start: 201409, end: 201807

REACTIONS (4)
  - Device breakage [Unknown]
  - Weight increased [Unknown]
  - Incorrect drug administration duration [Unknown]
  - Complication of device removal [Unknown]

NARRATIVE: CASE EVENT DATE: 201709
